FAERS Safety Report 13652111 (Version 1)
Quarter: 2017Q2

REPORT INFORMATION
  Report Type: Report from Study
  Country: JP (occurrence: JP)
  Receive Date: 20170614
  Receipt Date: 20170614
  Transmission Date: 20170830
  Serious: Yes (Hospitalization)
  Sender: FDA-Public Use
  Company Number: JP-AMGEN-JPNCT2011053638

PATIENT
  Age: 37 Year
  Sex: Female
  Weight: 56.9 kg

DRUGS (17)
  1. CATLEP [Concomitant]
     Active Substance: INDOMETHACIN
     Dosage: UNK
     Route: 062
     Dates: start: 20110928, end: 20111005
  2. ZOLPIDEM TARTRATE. [Concomitant]
     Active Substance: ZOLPIDEM TARTRATE
     Dosage: 5 MG, UNK
     Route: 048
     Dates: start: 20110706, end: 20110727
  3. LOXOPROFEN SODIUM [Concomitant]
     Active Substance: LOXOPROFEN SODIUM
     Dosage: 60 MG, UNK
     Route: 048
     Dates: start: 20110407
  4. RANITIDINE HYDROCHLORIDE. [Concomitant]
     Active Substance: RANITIDINE HYDROCHLORIDE
     Dosage: 50 MG, UNK
     Route: 042
     Dates: start: 20110511, end: 20110928
  5. PACLITAXEL. [Concomitant]
     Active Substance: PACLITAXEL
     Dosage: 114 MG, UNK
     Route: 042
     Dates: start: 20081023, end: 20110928
  6. METOCLOPRAMIDE. [Concomitant]
     Active Substance: METOCLOPRAMIDE
     Dosage: 5 MG, UNK
     Route: 048
     Dates: start: 20110513, end: 20110930
  7. LASIX [Concomitant]
     Active Substance: FUROSEMIDE
     Indication: GENERALISED OEDEMA
     Dosage: 20-40 MG
     Route: 048
     Dates: start: 20110813
  8. DEXAMETHASONE SODIUM PHOSPHATE. [Concomitant]
     Active Substance: DEXAMETHASONE SODIUM PHOSPHATE
     Dosage: UNK
     Route: 042
     Dates: start: 20110511, end: 20110928
  9. RAMOSETRON HYDROCHLORIDE [Concomitant]
     Active Substance: RAMOSETRON HYDROCHLORIDE
     Dosage: 0.3 MG, UNK
     Route: 042
     Dates: start: 20110511, end: 20110928
  10. SODIUM PICOSULFATE [Concomitant]
     Active Substance: SODIUM PICOSULFATE
     Dosage: UNK GTT, UNK
     Route: 048
     Dates: start: 20110513
  11. TEPRENONE [Concomitant]
     Active Substance: TEPRENONE
     Dosage: 50 MG, UNK
     Route: 048
     Dates: start: 20110414
  12. CHLORPHENIRAMINE MALEATE. [Concomitant]
     Active Substance: CHLORPHENIRAMINE MALEATE
     Dosage: 10 MG, UNK
     Route: 042
     Dates: start: 20110511, end: 20110928
  13. AMG 386 [Suspect]
     Active Substance: TREBANANIB
     Indication: OVARIAN CANCER
     Dosage: UNK
     Route: 065
     Dates: start: 20110511, end: 20110928
  14. INDISETRON HYDROCHLORIDE [Concomitant]
     Active Substance: INDISETRON HYDROCHLORIDE
     Dosage: 8 MG, UNK
     Route: 048
     Dates: start: 20110519, end: 20110930
  15. ASPARA POTASSIUM [Concomitant]
     Active Substance: POTASSIUM ASPARTATE
     Dosage: 300 MG, UNK
     Route: 048
     Dates: start: 20110831
  16. DIPHENHYDRAMINE. [Concomitant]
     Active Substance: DIPHENHYDRAMINE
     Dosage: UNK
     Route: 062
     Dates: start: 20110706, end: 20111005
  17. DAIKENTYUTO [Concomitant]
     Active Substance: HERBALS
     Indication: ILEUS
     Dosage: 2.5 G, TID
     Route: 048
     Dates: start: 20081008

REACTIONS (2)
  - Ascites [Not Recovered/Not Resolved]
  - Pleural effusion [Not Recovered/Not Resolved]

NARRATIVE: CASE EVENT DATE: 20111011
